FAERS Safety Report 6491819-4 (Version None)
Quarter: 2009Q4

REPORT INFORMATION
  Report Type: 
  Country: None (occurrence: None)
  Receive Date: 20091210
  Receipt Date: 20091124
  Transmission Date: 20100525
  Serious: Yes (Hospitalization, Other)
  Sender: FDA-Public Use
  Company Number: 2009SP016944

PATIENT
  Age: 50 Year
  Sex: Female
  Weight: 62.5964 kg

DRUGS (1)
  1. NUVARING [Suspect]
     Indication: VULVOVAGINAL DRYNESS
     Dosage: QM;VAG
     Route: 067
     Dates: start: 20061101, end: 20070101

REACTIONS (16)
  - ALOPECIA [None]
  - CELLULITIS [None]
  - CULTURE URINE POSITIVE [None]
  - CYST [None]
  - DEEP VEIN THROMBOSIS [None]
  - HYPOAESTHESIA FACIAL [None]
  - HYPOAESTHESIA ORAL [None]
  - LACUNAR INFARCTION [None]
  - PAIN [None]
  - PHLEBITIS [None]
  - PLEURAL EFFUSION [None]
  - PNEUMONIA [None]
  - PULMONARY EMBOLISM [None]
  - PYELONEPHRITIS [None]
  - URINARY TRACT INFECTION [None]
  - VARICOSE VEIN [None]
